FAERS Safety Report 5745905-4 (Version None)
Quarter: 2008Q2

REPORT INFORMATION
  Report Type: 
  Country: None (occurrence: None)
  Receive Date: 20080521
  Receipt Date: 20080513
  Transmission Date: 20081010
  Serious: Yes (Hospitalization)
  Sender: FDA-Public Use
  Company Number: US-GENENTECH-258850

PATIENT
  Sex: Male

DRUGS (4)
  1. BEVACIZUMAB [Suspect]
     Indication: OESOPHAGEAL ADENOCARCINOMA
     Dosage: UNK, UNK
     Dates: start: 20080107
  2. RADIOTHERAPY [Suspect]
     Indication: OESOPHAGEAL ADENOCARCINOMA
     Dates: start: 20080216
  3. CISPLATIN [Suspect]
     Indication: OESOPHAGEAL ADENOCARCINOMA
     Dosage: UNK, UNK
     Dates: start: 20080107
  4. IRINOTECAN HCL [Suspect]
     Indication: OESOPHAGEAL ADENOCARCINOMA
     Dosage: UNK, UNK
     Dates: start: 20080107

REACTIONS (10)
  - DEEP VEIN THROMBOSIS [None]
  - DEHYDRATION [None]
  - HYPOCALCAEMIA [None]
  - HYPOKALAEMIA [None]
  - HYPOMAGNESAEMIA [None]
  - NEUTROPENIA [None]
  - NODULE [None]
  - OESOPHAGEAL ULCER [None]
  - OESOPHAGITIS [None]
  - STAPHYLOCOCCAL SEPSIS [None]
